FAERS Safety Report 6427346-X (Version None)
Quarter: 2009Q4

REPORT INFORMATION
  Report Type: 
  Country: None (occurrence: None)
  Receive Date: 20091104
  Receipt Date: 20091029
  Transmission Date: 20100525
  Serious: Yes (Other)
  Sender: FDA-Public Use
  Company Number: FR-RB-023630-09

PATIENT
  Age: 73 Year
  Sex: Male

DRUGS (3)
  1. TEMGESIC [Suspect]
     Indication: ANKYLOSING SPONDYLITIS
     Route: 060
     Dates: start: 20091021
  2. TEMGESIC [Suspect]
     Route: 060
     Dates: start: 20091022
  3. ATENOLOL [Concomitant]
     Indication: DRUG USE FOR UNKNOWN INDICATION
     Dosage: UNKNOWN DOSING DETAILS
     Route: 065

REACTIONS (5)
  - ABDOMINAL DISTENSION [None]
  - BLADDER CANCER [None]
  - NAUSEA [None]
  - OVERDOSE [None]
  - SOMNOLENCE [None]
